FAERS Safety Report 6041015-X (Version None)
Quarter: 2009Q1

REPORT INFORMATION
  Report Type: 
  Country: None (occurrence: None)
  Receive Date: 20090116
  Receipt Date: 20080725
  Transmission Date: 20090719
  Serious: No
  Sender: FDA-Public Use
  Company Number: US-BRISTOL-MYERS SQUIBB COMPANY-14278055

PATIENT
  Age: 62 Year
  Sex: Male
  Weight: 82 kg

DRUGS (3)
  1. ABILIFY [Suspect]
     Indication: BIPOLAR I DISORDER
     Dosage: BEGAN 2MG QD FOR 2WEEKS,INCREASED TO 5MG QD 2WEEKS.STOPPED LAST DOSE:19-JUL-2008
     Dates: end: 20080719
  2. LITHIUM [Concomitant]
  3. KLONOPIN [Concomitant]
     Dosage: ON 07/24/2008, HIS PSYCHIATRIST INSTRUCTED HIM TO DOUBLE HIS DOSE OF KLONOPIN FROM 2MG TO 4MG

REACTIONS (5)
  - DIZZINESS [None]
  - FALL [None]
  - HEADACHE [None]
  - INSOMNIA [None]
  - VISION BLURRED [None]
